FAERS Safety Report 8306893-X (Version None)
Quarter: 2012Q2

REPORT INFORMATION
  Report Type: 
  Country: None (occurrence: None)
  Receive Date: 20120424
  Receipt Date: 20120413
  Transmission Date: 20120825
  Serious: Yes (Hospitalization)
  Sender: FDA-Public Use
  Company Number: CA-JNJFOC-20120406591

PATIENT
  Sex: Female
  Weight: 95 kg

DRUGS (3)
  1. REMICADE [Suspect]
     Route: 042
     Dates: start: 20070101
  2. FRAGMIN [Concomitant]
     Indication: THROMBOSIS
     Route: 065
  3. REMICADE [Suspect]
     Indication: POLYCHONDRITIS
     Route: 042
     Dates: start: 20111201

REACTIONS (2)
  - KNEE ARTHROPLASTY [None]
  - DRUG EFFECT DECREASED [None]
